FAERS Safety Report 16364982 (Version 1)
Quarter: 2019Q2

REPORT INFORMATION
  Report Type: Spontaneous
  Country: US (occurrence: US)
  Receive Date: 20190529
  Receipt Date: 20190529
  Transmission Date: 20190711
  Serious: Yes (Hospitalization)
  Sender: FDA-Public Use
  Company Number: US-UNICHEM PHARMACEUTICALS (USA) INC-UCM201905-000177

PATIENT
  Age: 14 Year
  Sex: Female

DRUGS (1)
  1. TOPIRAMATE. [Suspect]
     Active Substance: TOPIRAMATE
     Indication: MIGRAINE
     Dosage: 18 G ( MORE THAN 400 MG/KG)

REACTIONS (4)
  - Generalised tonic-clonic seizure [Unknown]
  - Overdose [Unknown]
  - Toxicity to various agents [Unknown]
  - Somnolence [Unknown]
